FAERS Safety Report 6135321-8 (Version None)
Quarter: 2009Q1

REPORT INFORMATION
  Report Type: 
  Country: None (occurrence: None)
  Receive Date: 20090327
  Receipt Date: 20081216
  Transmission Date: 20090719
  Serious: No
  Sender: FDA-Public Use
  Company Number: US-BRISTOL-MYERS SQUIBB COMPANY-14444723

PATIENT

DRUGS (1)
  1. SPRYCEL [Suspect]

REACTIONS (1)
  - ADVERSE EVENT [None]
